FAERS Safety Report 5121352-3 (Version None)
Quarter: 2006Q4

REPORT INFORMATION
  Report Type: 
  Country: None (occurrence: None)
  Receive Date: 20061002
  Receipt Date: 20060918
  Transmission Date: 20070319
  Serious: Yes (Hospitalization)
  Sender: FDA-Public Use
  Company Number: US200609004430

PATIENT
  Age: 42 Year
  Sex: Male

DRUGS (4)
  1. HUMALOG [Suspect]
     Indication: DIABETES MELLITUS
     Dates: start: 20051101
  2. HUMULIN 70/30 [Suspect]
     Indication: DIABETES MELLITUS
     Dates: start: 20010101, end: 20051101
  3. HUMALOG PEN (HUMALOG PEN) [Concomitant]
  4. LANTUS [Concomitant]

REACTIONS (5)
  - FALL [None]
  - JOINT INJURY [None]
  - KNEE ARTHROPLASTY [None]
  - STAPHYLOCOCCAL INFECTION [None]
  - SURGICAL PROCEDURE REPEATED [None]
